FAERS Safety Report 19351700 (Version 1)
Quarter: 2021Q2

REPORT INFORMATION
  Report Type: Spontaneous
  Country: PK (occurrence: PK)
  Receive Date: 20210531
  Receipt Date: 20210531
  Transmission Date: 20210717
  Serious: Yes (Other)
  Sender: FDA-Public Use
  Company Number: PK-AMGEN-PAKSP2021056544

PATIENT
  Age: 49 Year
  Sex: Female
  Weight: 88 kg

DRUGS (13)
  1. DULANE [Concomitant]
     Dosage: 60 MG, 1X/DAY(AFTER BREAKFAST)
  2. DELTACORTRIL [Concomitant]
     Active Substance: PREDNISOLONE
     Dosage: 5 MG, 1X/DAY(AFTER BREAKFAST)
  3. CAC [Concomitant]
     Dosage: 1 DOSAGE FORM, QD
  4. METHOTREXATE. [Concomitant]
     Active Substance: METHOTREXATE
     Dosage: 20 MILLIGRAM, QWK
  5. SALAZODINE [Concomitant]
     Dosage: 500 MG, 2X/DAY(1 TABLET IN MORNING AND 1 EVENING AFTER MEAL)
  6. ENBREL [Suspect]
     Active Substance: ETANERCEPT
     Indication: RHEUMATOID ARTHRITIS
     Dosage: 50 MILLIGRAM, Q2WK
     Route: 058
  7. ENBREL [Suspect]
     Active Substance: ETANERCEPT
     Indication: PSORIATIC ARTHROPATHY
     Dosage: 50 MILLIGRAM, QWK
     Route: 058
     Dates: start: 20210330
  8. FOLIC ACID. [Concomitant]
     Active Substance: FOLIC ACID
     Dosage: 5 MG, 2X/WEEK(MON TUE)
  9. RISEK [OMEPRAZOLE] [Concomitant]
     Dosage: 20 MG, 2X/DAY(TAKE 1 CAPSULE IN MORNING AND 1 IN NIGHT AFTER MEAL)
  10. PREVNAR 13 [Concomitant]
     Active Substance: PNEUMOCOCCAL 13-VALENT CONJUGATE VACCINE
     Indication: IMMUNISATION
     Dosage: SINGLE DOSE
     Route: 030
  11. PREDNISOLONE. [Concomitant]
     Active Substance: PREDNISOLONE
     Dosage: 5 MILLIGRAM, QD
  12. STARCOX [Concomitant]
     Dosage: 60 MG, 1X/DAY(IN EVENING)
  13. CYTOTREXATE [Concomitant]
     Dosage: 10 MG, 2X/WEEK(SAT, SUN 2 HRS AFTER BREAKFAST)

REACTIONS (6)
  - Joint swelling [Unknown]
  - Hypertension [Unknown]
  - Fibromyalgia [Unknown]
  - Diabetes mellitus [Unknown]
  - Arthralgia [Unknown]
  - Off label use [Unknown]
